FAERS Safety Report 16359185 (Version 1)
Quarter: 2019Q2

REPORT INFORMATION
  Report Type: Spontaneous
  Country: US (occurrence: US)
  Receive Date: 20190527
  Receipt Date: 20190527
  Transmission Date: 20190711
  Serious: No
  Sender: FDA-Public Use
  Company Number: US-SA-2019SA140120

PATIENT
  Age: 60 Year
  Sex: Female

DRUGS (8)
  1. ASMANEX [Concomitant]
     Active Substance: MOMETASONE FUROATE
  2. PANTOPRAZOLE [Concomitant]
     Active Substance: PANTOPRAZOLE
  3. DULERA [Concomitant]
     Active Substance: FORMOTEROL FUMARATE DIHYDRATE\MOMETASONE FUROATE
  4. HYDROXYZINE [Concomitant]
     Active Substance: HYDROXYZINE HYDROCHLORIDE
  5. FLUNASE [FLUNISOLIDE] [Concomitant]
  6. BUSPIRONE [Concomitant]
     Active Substance: BUSPIRONE HYDROCHLORIDE
  7. ALBUTEROL HFA [Concomitant]
     Active Substance: ALBUTEROL SULFATE
  8. DUPIXENT [Suspect]
     Active Substance: DUPILUMAB
     Dosage: 300 MG, QOW
     Route: 058
     Dates: start: 20190501

REACTIONS (3)
  - Throat irritation [Unknown]
  - Cough [Unknown]
  - Eye swelling [Unknown]
